FAERS Safety Report 23674278 (Version 1)
Quarter: 2024Q1

REPORT INFORMATION
  Report Type: Spontaneous
  Country: US (occurrence: US)
  Receive Date: 20240326
  Receipt Date: 20240326
  Transmission Date: 20240410
  Serious: No
  Sender: FDA-Public Use
  Company Number: US-GSK-US2024AMR036874

PATIENT
  Sex: Female

DRUGS (3)
  1. ALBUTEROL [Suspect]
     Active Substance: ALBUTEROL
     Indication: Product used for unknown indication
     Dosage: UNK 90 MCG 18 G/ 200 METERED
  2. ALBUTEROL [Suspect]
     Active Substance: ALBUTEROL
     Indication: Product used for unknown indication
     Dosage: 90 MCG 18 G/ 200 METERED
  3. ALBUTEROL [Suspect]
     Active Substance: ALBUTEROL

REACTIONS (2)
  - Product dose omission issue [Unknown]
  - Product cleaning inadequate [Unknown]
